FAERS Safety Report 9915147 (Version 2)
Quarter: 2014Q1

REPORT INFORMATION
  Report Type: Spontaneous
  Country: CN (occurrence: CN)
  Receive Date: 20140220
  Receipt Date: 20140228
  Transmission Date: 20141002
  Serious: Yes (Other)
  Sender: FDA-Public Use
  Company Number: CN-ABBVIE-14P-035-1203996-00

PATIENT
  Age: 18 Month
  Sex: Male

DRUGS (6)
  1. DEPAKINE [Suspect]
     Indication: EPILEPSY
     Route: 048
     Dates: start: 201310
  2. DEPAKINE [Suspect]
     Route: 048
     Dates: start: 201311
  3. DEPAKINE [Suspect]
     Route: 048
     Dates: start: 201312
  4. DEPAKINE [Suspect]
     Route: 048
     Dates: start: 201401
  5. DEPAKINE [Suspect]
     Route: 048
     Dates: start: 20140213
  6. LEVETIRACETAM [Concomitant]
     Indication: PRODUCT USED FOR UNKNOWN INDICATION
     Dates: start: 201307

REACTIONS (7)
  - Foaming at mouth [Recovered/Resolved]
  - Grand mal convulsion [Recovered/Resolved]
  - Coma [Recovered/Resolved]
  - Trismus [Unknown]
  - Convulsion [Recovered/Resolved]
  - Loss of consciousness [Recovered/Resolved]
  - Petit mal epilepsy [Recovered/Resolved]
